FAERS Safety Report 9840291 (Version 4)
Quarter: 2014Q3

REPORT INFORMATION
  Report Type: Spontaneous
  Country: JP (occurrence: JP)
  Receive Date: 20140124
  Receipt Date: 20140701
  Transmission Date: 20150326
  Serious: Yes (Other)
  Sender: FDA-Public Use
  Company Number: JP-ELI_LILLY_AND_COMPANY-JP201401005354

PATIENT
  Age: 63 Year
  Sex: Male
  Weight: 79 kg

DRUGS (10)
  1. AVASTIN [Suspect]
     Active Substance: BEVACIZUMAB
     Indication: LUNG ADENOCARCINOMA
     Dosage: 1195 MG, OTHER
     Route: 042
     Dates: start: 20130708, end: 20130807
  2. ALIMTA [Suspect]
     Active Substance: PEMETREXED DISODIUM
     Indication: LUNG ADENOCARCINOMA
     Dosage: 960 MG, OTHER
     Route: 042
     Dates: start: 20130708
  3. PARAPLATIN [Suspect]
     Active Substance: CARBOPLATIN
     Indication: LUNG ADENOCARCINOMA
     Dosage: 840 MG, OTHER
     Route: 042
     Dates: start: 20130708, end: 20131001
  4. METHYCOBAL [Concomitant]
     Active Substance: METHYLCOBALAMIN
     Indication: PROPHYLAXIS
     Dosage: 1000 UG, OTHER
     Route: 030
     Dates: start: 20130626
  5. ZETIA [Concomitant]
     Active Substance: EZETIMIBE
     Indication: CHRONIC HEPATITIS B
     Dosage: 10 MG, MONTHLY (1/M)
     Route: 065
     Dates: start: 20120822
  6. RINDERON                           /00008501/ [Concomitant]
     Indication: PAIN
     Dosage: 0.5 MG, QD
     Route: 048
     Dates: start: 20130724, end: 20140204
  7. PANVITAN                           /00466101/ [Concomitant]
     Indication: PROPHYLAXIS
     Dosage: 1 G, QD
     Dates: start: 20130626
  8. DECADRAN                           /00016001/ [Concomitant]
     Indication: PROPHYLAXIS
     Dosage: 4 MG, OTHER
     Route: 048
     Dates: start: 20130708
  9. OXYCONTIN [Concomitant]
     Active Substance: OXYCODONE HYDROCHLORIDE
     Indication: PAIN
     Dosage: 10 MG, QD
     Route: 048
     Dates: start: 20130630
  10. BARACLUDE [Concomitant]
     Active Substance: ENTECAVIR
     Indication: CHRONIC HEPATITIS B
     Dosage: 0.5 MG, QD
     Route: 048
     Dates: start: 20120725

REACTIONS (2)
  - Osteonecrosis of jaw [Recovering/Resolving]
  - Oesophagitis [Recovered/Resolved]

NARRATIVE: CASE EVENT DATE: 20130818
